FAERS Safety Report 13560381 (Version 1)
Quarter: 2017Q2

REPORT INFORMATION
  Report Type: Report from Study
  Country: BR (occurrence: BR)
  Receive Date: 20170518
  Receipt Date: 20170518
  Transmission Date: 20170830
  Serious: Yes (Other)
  Sender: FDA-Public Use
  Company Number: PHHY2017BR072203

PATIENT
  Sex: Female
  Weight: 58 kg

DRUGS (1)
  1. EXELON PATCH [Suspect]
     Active Substance: RIVASTIGMINE
     Indication: DEMENTIA ALZHEIMER^S TYPE
     Dosage: 4.6 MG, QD PATCH 5 (CM2)
     Route: 062

REACTIONS (2)
  - Dysentery [Unknown]
  - Application site reaction [Unknown]
